FAERS Safety Report 6125554-9 (Version None)
Quarter: 2009Q1

REPORT INFORMATION
  Report Type: 
  Country: None (occurrence: None)
  Receive Date: 20090320
  Receipt Date: 20090311
  Transmission Date: 20090719
  Serious: Yes (Hospitalization)
  Sender: FDA-Public Use
  Company Number: FR-ASTRAZENECA-2009CG00513

PATIENT
  Age: 16896 Day
  Sex: Female

DRUGS (11)
  1. DIPRIVAN [Suspect]
     Indication: SEDATION
     Route: 042
     Dates: start: 20081203, end: 20081215
  2. MIDAZOLAM DAKOTA PHARM [Suspect]
     Indication: SEDATION
     Route: 042
     Dates: start: 20081203, end: 20081215
  3. FENTANYL MERCK [Suspect]
     Indication: SEDATION
     Route: 042
     Dates: start: 20081203, end: 20081215
  4. CYMBALTA [Concomitant]
  5. TERCIAN [Concomitant]
  6. ZOPICLONE ARROW [Concomitant]
  7. IKARAN LP [Concomitant]
  8. TRANXENE [Concomitant]
  9. EQUANIL [Concomitant]
  10. MEPRONIZINE [Concomitant]
  11. VALIUM [Concomitant]

REACTIONS (1)
  - DRUG WITHDRAWAL CONVULSIONS [None]
